FAERS Safety Report 20331489 (Version 1)
Quarter: 2022Q1

REPORT INFORMATION
  Report Type: Spontaneous
  Country: US (occurrence: None)
  Receive Date: 20220112
  Receipt Date: 20220112
  Transmission Date: 20220423
  Serious: No
  Sender: FDA-Public Use
  Company Number: None

PATIENT
  Sex: Male

DRUGS (1)
  1. PEMAZYRE [Suspect]
     Active Substance: PEMIGATINIB
     Indication: Bile duct cancer
     Dosage: FREQUENCY : DAILY;?
     Route: 048
     Dates: start: 20211223

REACTIONS (4)
  - Blood phosphorus increased [None]
  - Hyperpyrexia [None]
  - Colonic abscess [None]
  - Spinal myelogram abnormal [None]
